FAERS Safety Report 20558058 (Version 1)
Quarter: 2022Q1

REPORT INFORMATION
  Report Type: Spontaneous
  Country: CA (occurrence: CA)
  Receive Date: 20220307
  Receipt Date: 20220307
  Transmission Date: 20220423
  Serious: Yes (Other)
  Sender: FDA-Public Use
  Company Number: CA-ADVANZ PHARMA-202202001224

PATIENT

DRUGS (1)
  1. PILOCARPINE [Suspect]
     Active Substance: PILOCARPINE
     Indication: Iridotomy
     Dosage: UNK, ONCE (PILOCARPINE HYDROCHLORIDE - LIQ OPH)
     Route: 047

REACTIONS (8)
  - Sudden onset of sleep [Recovered/Resolved]
  - Dizziness [Recovered/Resolved]
  - Fatigue [Recovered/Resolved]
  - Hyperhidrosis [Recovered/Resolved]
  - Palpitations [Recovered/Resolved]
  - Vomiting [Recovered/Resolved]
  - Headache [Recovered/Resolved]
  - Nausea [Recovered/Resolved]
